FAERS Safety Report 24702314 (Version 1)
Quarter: 2024Q4

REPORT INFORMATION
  Report Type: Spontaneous
  Country: US (occurrence: None)
  Receive Date: 20241204
  Receipt Date: 20241204
  Transmission Date: 20250115
  Serious: Yes (Hospitalization)
  Sender: Public
  Company Number: None

PATIENT
  Sex: Female

DRUGS (1)
  1. SCEMBLIX [Suspect]
     Active Substance: ASCIMINIB HYDROCHLORIDE
     Indication: Acute myeloid leukaemia
     Dosage: 40 MG TWICE A DAY ORAL
     Route: 048
     Dates: start: 20240731

REACTIONS (3)
  - Blood potassium decreased [None]
  - Blood magnesium decreased [None]
  - Renal impairment [None]
